FAERS Safety Report 21300376 (Version 1)
Quarter: 2022Q3

REPORT INFORMATION
  Report Type: Spontaneous
  Country: GB (occurrence: GB)
  Receive Date: 20220907
  Receipt Date: 20220907
  Transmission Date: 20221026
  Serious: Yes (Life-Threatening, Other)
  Sender: FDA-Public Use
  Company Number: GB-MHRA-EYC 00067484

PATIENT
  Age: 29 Year
  Sex: Male
  Weight: 88.9 kg

DRUGS (1)
  1. OLANZAPINE [Suspect]
     Active Substance: OLANZAPINE
     Indication: Product used for unknown indication
     Dosage: PREVIOUSLY ON 10MG.
     Route: 048

REACTIONS (4)
  - Dyspnoea [Unknown]
  - Obesity [Unknown]
  - Tachycardia [Unknown]
  - Vomiting [Unknown]
